FAERS Safety Report 8555368-1 (Version None)
Quarter: 2012Q3

REPORT INFORMATION
  Report Type: 
  Country: None (occurrence: None)
  Receive Date: 20120731
  Receipt Date: 20111201
  Transmission Date: 20120928
  Serious: No
  Sender: FDA-Public Use
  Company Number: US-ASTRAZENECA-2011SE39550

PATIENT
  Age: 58 Year
  Sex: Female

DRUGS (2)
  1. SEROQUEL [Suspect]
     Indication: SLEEP DISORDER
     Route: 048
  2. SEROQUEL [Suspect]
     Indication: ANTIDEPRESSANT THERAPY
     Route: 048

REACTIONS (8)
  - DRUG WITHDRAWAL SYNDROME [None]
  - OROPHARYNGEAL PAIN [None]
  - FEELING ABNORMAL [None]
  - HEAD DISCOMFORT [None]
  - INSOMNIA [None]
  - HYPERSENSITIVITY [None]
  - DRUG DOSE OMISSION [None]
  - OFF LABEL USE [None]
